FAERS Safety Report 15707039 (Version 2)
Quarter: 2018Q4

REPORT INFORMATION
  Report Type: Report from Study
  Country: US (occurrence: US)
  Receive Date: 20181210
  Receipt Date: 20181221
  Transmission Date: 20190205
  Serious: Yes (Death)
  Sender: FDA-Public Use
  Company Number: US-BIOGEN-2018BI00668795

PATIENT
  Age: 58 Year
  Sex: Female

DRUGS (1)
  1. TYSABRI [Suspect]
     Active Substance: NATALIZUMAB
     Indication: CROHN^S DISEASE
     Route: 065
     Dates: start: 20140312, end: 20180822

REACTIONS (1)
  - Death [Fatal]

NARRATIVE: CASE EVENT DATE: 20181106
